FAERS Safety Report 9192341 (Version 2)
Quarter: 2014Q1

REPORT INFORMATION
  Report Type: Spontaneous
  Country: US (occurrence: US)
  Receive Date: 20130327
  Receipt Date: 20140214
  Transmission Date: 20141002
  Serious: Yes (Death, Other)
  Sender: FDA-Public Use
  Company Number: US-TEVA-394699USA

PATIENT
  Age: 36 Year
  Sex: Male
  Weight: 105.33 kg

DRUGS (6)
  1. FENTANYL [Suspect]
     Indication: PRODUCT USED FOR UNKNOWN INDICATION
  2. PROMETHAZINE [Suspect]
  3. MIRTAZAPINE [Suspect]
  4. ACETAMINOPHEN W/HYDROCODONE [Suspect]
  5. CARISOPRODOL [Suspect]
  6. MEPROBAMATE [Suspect]

REACTIONS (9)
  - Drug abuse [Fatal]
  - Toxicity to various agents [Fatal]
  - Hypertensive cardiomyopathy [Not Recovered/Not Resolved]
  - Coronary artery stenosis [Not Recovered/Not Resolved]
  - Pulmonary congestion [Not Recovered/Not Resolved]
  - Pulmonary oedema [Not Recovered/Not Resolved]
  - Pneumonia [Not Recovered/Not Resolved]
  - Contusion [Not Recovered/Not Resolved]
  - Excoriation [Recovering/Resolving]
